FAERS Safety Report 9710645 (Version 2)
Quarter: 2013Q4

REPORT INFORMATION
  Report Type: Spontaneous
  Country: US (occurrence: US)
  Receive Date: 20131126
  Receipt Date: 20131203
  Transmission Date: 20140711
  Serious: Yes (Hospitalization, Other)
  Sender: FDA-Public Use
  Company Number: US-BAYER-2013-140362

PATIENT
  Age: 16 Year
  Sex: Male

DRUGS (1)
  1. GADAVIST [Suspect]
     Indication: ANGIOGRAM
     Dosage: 10 ML, ONCE
     Route: 042
     Dates: start: 20131113, end: 20131113

REACTIONS (7)
  - Pulmonary oedema [None]
  - Dyspnoea [None]
  - Flushing [None]
  - Chest discomfort [None]
  - Dizziness postural [None]
  - Vomiting [None]
  - Pallor [None]
